FAERS Safety Report 16239217 (Version 1)
Quarter: 2019Q2

REPORT INFORMATION
  Report Type: Spontaneous
  Country: ES (occurrence: ES)
  Receive Date: 20190425
  Receipt Date: 20190425
  Transmission Date: 20190711
  Serious: Yes (Other)
  Sender: FDA-Public Use
  Company Number: ES-GILEAD-2019-0403294

PATIENT
  Age: 68 Year
  Sex: Male

DRUGS (4)
  1. CITALOPRAM [Concomitant]
     Active Substance: CITALOPRAM HYDROBROMIDE
  2. METFORMIN [Concomitant]
     Active Substance: METFORMIN HYDROCHLORIDE
  3. FUROSEMIDE. [Concomitant]
     Active Substance: FUROSEMIDE
  4. ATRIPLA [Suspect]
     Active Substance: EFAVIRENZ\EMTRICITABINE\TENOFOVIR DISOPROXIL FUMARATE
     Indication: HIV INFECTION
     Dosage: UNK
     Route: 065
     Dates: start: 200906, end: 20131220

REACTIONS (28)
  - Ascites [Recovered/Resolved]
  - Pneumonia [Unknown]
  - Ulcer [Unknown]
  - Dehydration [Unknown]
  - Varices oesophageal [Not Recovered/Not Resolved]
  - Gastritis [Unknown]
  - Portal hypertension [Unknown]
  - Cardiac failure [Recovered/Resolved]
  - Rectal haemorrhage [Unknown]
  - Adenoma benign [Recovered/Resolved]
  - Polyneuropathy [Unknown]
  - Cellulitis [Unknown]
  - Colitis [Unknown]
  - Metaplasia [Unknown]
  - Oedema genital [Recovered/Resolved]
  - Depression [Unknown]
  - Gastric ulcer [Unknown]
  - Gastrointestinal haemorrhage [Unknown]
  - Haemorrhoids [Unknown]
  - Duodenitis [Unknown]
  - Asthenia [Unknown]
  - Hepatic encephalopathy [Unknown]
  - Dermal cyst [Recovered/Resolved]
  - Oesophagitis [Unknown]
  - Ataxia [Unknown]
  - Portal hypertensive gastropathy [Unknown]
  - Polyp [Recovered/Resolved]
  - Diarrhoea [Unknown]

NARRATIVE: CASE EVENT DATE: 20120903
